FAERS Safety Report 6308872-0 (Version None)
Quarter: 2009Q3

REPORT INFORMATION
  Report Type: 
  Country: None (occurrence: None)
  Receive Date: 20090813
  Receipt Date: 20090126
  Transmission Date: 20100115
  Serious: No
  Sender: FDA-Public Use
  Company Number: US-ALLERGAN-0900459US

PATIENT
  Age: 72 Year
  Sex: Female

DRUGS (3)
  1. COMBIGAN [Suspect]
     Indication: GLAUCOMA
     Dosage: 1 GTT, BID
     Route: 047
     Dates: start: 20080101, end: 20090128
  2. AZOPT [Suspect]
     Indication: GLAUCOMA
     Dosage: UNK, UNK
     Dates: end: 20090128
  3. XALATAN [Suspect]
     Indication: GLAUCOMA
     Dosage: UNK, UNK
     Dates: end: 20090128

REACTIONS (1)
  - VISION BLURRED [None]
